FAERS Safety Report 4522263-4 (Version None)
Quarter: 2004Q4

REPORT INFORMATION
  Report Type: 
  Country: None (occurrence: None)
  Receive Date: 20041207
  Receipt Date: 20041117
  Transmission Date: 20050328
  Serious: Yes (Hospitalization)
  Sender: FDA-Public Use
  Company Number: US_0411108131

PATIENT
  Sex: Male

DRUGS (8)
  1. GEMZAR [Suspect]
     Indication: CARCINOMA
  2. CISPLATIN [Concomitant]
  3. FLUOROURACIL [Concomitant]
  4. SODIUM CHLORIDE 0.9% [Concomitant]
  5. GRANULOCYTE COLONY STIMULATING FACTOR [Concomitant]
  6. SEROTONIN ANTAGONIST [Concomitant]
  7. DEXAMETHASONE [Concomitant]
  8. METOCLOPRAMIDE [Concomitant]

REACTIONS (3)
  - BILE DUCT OBSTRUCTION [None]
  - NEUTROPHIL COUNT INCREASED [None]
  - PNEUMONIA [None]
